FAERS Safety Report 6474748-1 (Version None)
Quarter: 2009Q4

REPORT INFORMATION
  Report Type: 
  Country: None (occurrence: None)
  Receive Date: 20091123
  Receipt Date: 20090827
  Transmission Date: 20100525
  Serious: No
  Sender: FDA-Public Use
  Company Number: 8051111

PATIENT
  Age: 51 Year
  Sex: Female
  Weight: 117.9 kg

DRUGS (5)
  1. CIMZIA [Suspect]
     Indication: CROHN'S DISEASE
     Dosage: 400 MG 1/2W SC
     Route: 058
     Dates: start: 20090814
  2. METFORMIN HCL [Concomitant]
  3. LAMICTAL [Concomitant]
  4. PAXIL [Concomitant]
  5. NORVASC [Concomitant]

REACTIONS (1)
  - CONSTIPATION [None]
